FAERS Safety Report 15116443 (Version 1)
Quarter: 2018Q3

REPORT INFORMATION
  Report Type: Report from Study
  Country: US (occurrence: US)
  Receive Date: 20180706
  Receipt Date: 20180706
  Transmission Date: 20181010
  Serious: Yes (Hospitalization)
  Sender: FDA-Public Use
  Company Number: US-PFIZER INC-2018260613

PATIENT
  Age: 75 Year
  Sex: Female
  Weight: 65.31 kg

DRUGS (1)
  1. TORISEL [Suspect]
     Active Substance: TEMSIROLIMUS
     Dosage: 25 MG/DOSE, WEEKLY
     Route: 042

REACTIONS (1)
  - Lung infection [Recovered/Resolved]
